FAERS Safety Report 9390183 (Version 1)
Quarter: 2013Q3

REPORT INFORMATION
  Report Type: Spontaneous
  Country: DE (occurrence: DE)
  Receive Date: 20130708
  Receipt Date: 20130708
  Transmission Date: 20140515
  Serious: Yes (Other)
  Sender: FDA-Public Use
  Company Number: DE-UCBSA-090776

PATIENT
  Age: 24 Year
  Sex: Female
  Weight: 70 kg

DRUGS (2)
  1. KEPPRA [Suspect]
     Indication: EPILEPSY
     Dates: start: 200504
  2. KEPPRA [Suspect]
     Indication: EPILEPSY
     Dosage: MORNING 1000 MG, MIDDAY 1000 MG, EVENING 1500 MG
     Dates: start: 20080604

REACTIONS (4)
  - Abortion spontaneous [Recovered/Resolved]
  - Inappropriate schedule of drug administration [Not Recovered/Not Resolved]
  - Overdose [Unknown]
  - Pregnancy [Recovered/Resolved]
